FAERS Safety Report 5287276-6 (Version None)
Quarter: 2007Q2

REPORT INFORMATION
  Report Type: 
  Country: None (occurrence: None)
  Receive Date: 20070404
  Receipt Date: 20070327
  Transmission Date: 20071010
  Serious: Yes (Disabling)
  Sender: FDA-Public Use
  Company Number: NL-PFIZER INC-2007024748

PATIENT
  Sex: Male
  Weight: 90 kg

DRUGS (2)
  1. LIPITOR [Suspect]
     Indication: HYPERCHOLESTEROLAEMIA
     Route: 048
  2. COZAAR [Concomitant]
     Route: 048

REACTIONS (1)
  - MULTIPLE SCLEROSIS [None]
